FAERS Safety Report 5857995-9 (Version None)
Quarter: 2008Q3

REPORT INFORMATION
  Report Type: 
  Country: None (occurrence: None)
  Receive Date: 20080818
  Receipt Date: 20080714
  Transmission Date: 20090109
  Serious: Yes (Hospitalization, Disabling)
  Sender: FDA-Public Use
  Company Number: WAES 0807USA02474

PATIENT
  Age: 64 Year
  Sex: Male

DRUGS (11)
  1. JANUVIA [Suspect]
     Indication: TYPE 2 DIABETES MELLITUS
     Dosage: 100 MG/DAILY/PO
     Route: 048
     Dates: start: 20071101
  2. ACIPHEX [Concomitant]
  3. EFFEXOR XR [Concomitant]
  4. EXFORGE [Concomitant]
  5. ASPIRIN [Concomitant]
  6. DOXAZOSIN MESYLATE [Concomitant]
  7. GLIPIZIDE [Concomitant]
  8. GLYBURIDE [Concomitant]
  9. HYDROCHLOROTHIAZIDE [Concomitant]
  10. METFORMIN HCL [Concomitant]
  11. SIMVASTATIN [Concomitant]

REACTIONS (1)
  - ANGIOEDEMA [None]
